FAERS Safety Report 21396994 (Version 4)
Quarter: 2024Q1

REPORT INFORMATION
  Report Type: Spontaneous
  Country: US (occurrence: US)
  Receive Date: 20220930
  Receipt Date: 20240126
  Transmission Date: 20240410
  Serious: No
  Sender: FDA-Public Use
  Company Number: US-PFIZER INC-PV202200073397

PATIENT
  Age: 66 Year
  Sex: Male

DRUGS (3)
  1. XELJANZ XR [Suspect]
     Active Substance: TOFACITINIB CITRATE
     Indication: Rheumatoid arthritis
     Dosage: UNK
     Dates: start: 202201, end: 2022
  2. XELJANZ XR [Suspect]
     Active Substance: TOFACITINIB CITRATE
     Dosage: 11 MG, 1X/DAY
     Route: 048
     Dates: start: 20220918
  3. NAPROXEN [Concomitant]
     Active Substance: NAPROXEN

REACTIONS (4)
  - Gastrointestinal disorder [Unknown]
  - Pain [Not Recovered/Not Resolved]
  - Blister [Unknown]
  - Irritable bowel syndrome [Unknown]
